FAERS Safety Report 4396805-6 (Version None)
Quarter: 2004Q3

REPORT INFORMATION
  Report Type: 
  Country: None (occurrence: None)
  Receive Date: 20040709
  Receipt Date: 20040629
  Transmission Date: 20050211
  Serious: Yes (Hospitalization)
  Sender: FDA-Public Use
  Company Number: 2001048749JP

PATIENT
  Age: 82 Year
  Sex: Male

DRUGS (7)
  1. CABERGOLINE [Suspect]
     Indication: PARKINSON'S DISEASE
     Dosage: 0.25 MG, QD, ORAL
     Route: 048
     Dates: start: 20010125, end: 20010131
  2. CABERGOLINE [Suspect]
     Indication: PARKINSON'S DISEASE
     Dosage: 0.25 MG, QD, ORAL
     Route: 048
     Dates: start: 20010201, end: 20010207
  3. CABERGOLINE [Suspect]
     Indication: PARKINSON'S DISEASE
     Dosage: 0.25 MG, QD, ORAL
     Route: 048
     Dates: start: 20010208, end: 20010215
  4. COMBINATION DRUG OF ASPIRIN AND DIALUMINATE [Concomitant]
  5. AMANTADINE HCL [Concomitant]
  6. ETIZOLAM (ETIZOLAM) [Concomitant]
  7. FLUNITRAZEPAM [Concomitant]

REACTIONS (4)
  - DEHYDRATION [None]
  - EXCITABILITY [None]
  - MALNUTRITION [None]
  - NEUROLEPTIC MALIGNANT SYNDROME [None]
